FAERS Safety Report 17408615 (Version 1)
Quarter: 2020Q1

REPORT INFORMATION
  Report Type: Report from Study
  Country: None (occurrence: US)
  Receive Date: 20200212
  Receipt Date: 20200212
  Transmission Date: 20200409
  Serious: Yes (Other)
  Sender: FDA-Public Use
  Company Number: US-ABBVIE-18K-163-2500497-00

PATIENT
  Sex: Female
  Weight: 72.64 kg

DRUGS (3)
  1. AMLODIPINE [Concomitant]
     Active Substance: AMLODIPINE BESYLATE
     Indication: PRODUCT USED FOR UNKNOWN INDICATION
  2. HUMIRA [Suspect]
     Active Substance: ADALIMUMAB
     Indication: PSORIASIS
     Route: 058
     Dates: start: 201803, end: 201902
  3. LEVOTHYROXINE. [Concomitant]
     Active Substance: LEVOTHYROXINE
     Indication: PRODUCT USED FOR UNKNOWN INDICATION

REACTIONS (7)
  - Systemic lupus erythematosus [Unknown]
  - Fatigue [Unknown]
  - Arthralgia [Recovered/Resolved]
  - Psoriasis [Recovering/Resolving]
  - Injection site pain [Not Recovered/Not Resolved]
  - Fear of injection [Unknown]
  - Purulence [Unknown]
